FAERS Safety Report 9117409 (Version 1)
Quarter: 2013Q1

REPORT INFORMATION
  Report Type: Report from Study
  Country: US (occurrence: US)
  Receive Date: 20130129
  Receipt Date: 20130129
  Transmission Date: 20140127
  Serious: No
  Sender: FDA-Public Use
  Company Number: US-ABBOTT-12P-163-0942032-00

PATIENT
  Age: 79 Year
  Sex: Male

DRUGS (7)
  1. HUMIRA 40 MG/0.8 ML PEN [Suspect]
     Indication: COLITIS ULCERATIVE
     Dates: start: 20120519
  2. LOVAZA [Concomitant]
     Indication: BLOOD CHOLESTEROL
     Dosage: 1 GRAM DAILY
     Route: 048
  3. TRICOR [Concomitant]
     Indication: BLOOD CHOLESTEROL
     Dosage: 145 MG DAILY
     Route: 048
  4. DIGOXIN [Concomitant]
     Indication: ATRIAL FIBRILLATION
     Dosage: 0.25 MG DAILY
     Route: 048
  5. TOPROL ER [Concomitant]
     Indication: ATRIAL FIBRILLATION
     Dosage: 100 MG DAILY
     Route: 048
  6. LIALDA [Concomitant]
     Indication: COLITIS ULCERATIVE
     Dosage: 1.2 GM, 2 TABS TWICE DAILY
  7. 6 MP [Concomitant]
     Indication: COLITIS ULCERATIVE
     Dosage: 50 MG, 2 TABS DAILY
     Route: 048

REACTIONS (5)
  - Malaise [Not Recovered/Not Resolved]
  - Fatigue [Not Recovered/Not Resolved]
  - Decreased appetite [Not Recovered/Not Resolved]
  - Chills [Not Recovered/Not Resolved]
  - Pyrexia [Not Recovered/Not Resolved]
